FAERS Safety Report 19158321 (Version 1)
Quarter: 2021Q2

REPORT INFORMATION
  Report Type: Report from Study
  Country: US (occurrence: US)
  Receive Date: 20210420
  Receipt Date: 20210420
  Transmission Date: 20210717
  Serious: Yes (Death)
  Sender: FDA-Public Use
  Company Number: US-ADAMAS PHARMA, LLC-2021ADA00803

PATIENT
  Age: 92 Year
  Sex: Female

DRUGS (15)
  1. GABAPENTIN. [Concomitant]
     Active Substance: GABAPENTIN
  2. NEUPRO [Concomitant]
     Active Substance: ROTIGOTINE
  3. BISACODYL. [Concomitant]
     Active Substance: BISACODYL
  4. SENNA?S [Concomitant]
     Active Substance: DOCUSATE SODIUM\SENNOSIDES
  5. MIRALAX [Concomitant]
     Active Substance: POLYETHYLENE GLYCOL 3350
  6. TRAMADOL. [Concomitant]
     Active Substance: TRAMADOL
  7. NUPLAZID [Concomitant]
     Active Substance: PIMAVANSERIN TARTRATE
  8. CALCIUM [Concomitant]
     Active Substance: CALCIUM
  9. MELOXICAM. [Concomitant]
     Active Substance: MELOXICAM
  10. GOCOVRI [Suspect]
     Active Substance: AMANTADINE
     Indication: DYSKINESIA
     Dosage: 137 MG, 1X/DAY AT BEDTIME
     Route: 048
     Dates: start: 20210303, end: 20210309
  11. CYMBALTA [Concomitant]
     Active Substance: DULOXETINE HYDROCHLORIDE
  12. OMEPRAZOLE. [Concomitant]
     Active Substance: OMEPRAZOLE
  13. GOCOVRI [Suspect]
     Active Substance: AMANTADINE
     Dosage: 274 MG, 1X/DAY AT BEDTIME
     Route: 048
     Dates: start: 20210310, end: 20210331
  14. XANAX [Concomitant]
     Active Substance: ALPRAZOLAM
  15. RYTARY [Concomitant]
     Active Substance: CARBIDOPA\LEVODOPA

REACTIONS (1)
  - Death [Fatal]

NARRATIVE: CASE EVENT DATE: 20210331
